FAERS Safety Report 16562356 (Version 2)
Quarter: 2020Q2

REPORT INFORMATION
  Report Type: Spontaneous
  Country: DE (occurrence: DE)
  Receive Date: 20190711
  Receipt Date: 20200522
  Transmission Date: 20200713
  Serious: Yes (Hospitalization, Other)
  Sender: FDA-Public Use
  Company Number: PHHY2019DE157463

PATIENT
  Age: 52 Year
  Sex: Female

DRUGS (45)
  1. METHOTREXATE. [Suspect]
     Active Substance: METHOTREXATE
     Dosage: 5 MG
     Route: 065
     Dates: start: 20170306
  2. METHOTREXATE. [Suspect]
     Active Substance: METHOTREXATE
     Dosage: 5 MG
     Route: 065
     Dates: start: 20160725
  3. METHOTREXATE. [Suspect]
     Active Substance: METHOTREXATE
     Dosage: 5 MG
     Route: 065
     Dates: start: 20180305
  4. TOCILIZUMAB. [Suspect]
     Active Substance: TOCILIZUMAB
     Dosage: 480 MG, Q4W
     Route: 042
     Dates: start: 20090820
  5. TOCILIZUMAB. [Suspect]
     Active Substance: TOCILIZUMAB
     Dosage: 480 MG
     Route: 042
     Dates: start: 20140228
  6. TOCILIZUMAB. [Suspect]
     Active Substance: TOCILIZUMAB
     Dosage: 480 MG
     Route: 042
     Dates: start: 20150907
  7. TOCILIZUMAB. [Suspect]
     Active Substance: TOCILIZUMAB
     Dosage: 480 MG
     Route: 042
     Dates: start: 20180916
  8. TOCILIZUMAB. [Suspect]
     Active Substance: TOCILIZUMAB
     Dosage: 480 MG
     Route: 042
     Dates: start: 20091123
  9. TOCILIZUMAB. [Suspect]
     Active Substance: TOCILIZUMAB
     Dosage: 480 MG
     Route: 042
     Dates: start: 20100820
  10. TOCILIZUMAB. [Suspect]
     Active Substance: TOCILIZUMAB
     Dosage: 480 MG
     Route: 042
     Dates: start: 20150329
  11. TOCILIZUMAB. [Suspect]
     Active Substance: TOCILIZUMAB
     Dosage: 480 MG
     Route: 042
     Dates: start: 20170306
  12. TOCILIZUMAB. [Suspect]
     Active Substance: TOCILIZUMAB
     Dosage: 480 MG
     Route: 042
     Dates: start: 20180816
  13. METHOTREXATE. [Suspect]
     Active Substance: METHOTREXATE
     Dosage: 10 MG
     Route: 065
     Dates: start: 20091123
  14. METHOTREXATE. [Suspect]
     Active Substance: METHOTREXATE
     Dosage: 7.5 MG
     Route: 065
     Dates: start: 20110222
  15. METHOTREXATE. [Suspect]
     Active Substance: METHOTREXATE
     Dosage: 5 MG
     Route: 065
     Dates: start: 20130228
  16. METHOTREXATE. [Suspect]
     Active Substance: METHOTREXATE
     Dosage: 5 MG
     Route: 065
     Dates: start: 20150907
  17. TOCILIZUMAB. [Suspect]
     Active Substance: TOCILIZUMAB
     Dosage: 480 MG
     Route: 042
     Dates: start: 20110222
  18. HUMIRA [Suspect]
     Active Substance: ADALIMUMAB
     Indication: RHEUMATOID ARTHRITIS
     Dosage: UNK
     Route: 065
     Dates: start: 200612, end: 200905
  19. METHOTREXATE. [Suspect]
     Active Substance: METHOTREXATE
     Dosage: 7.5 MG
     Route: 065
     Dates: start: 20110825
  20. METHOTREXATE. [Suspect]
     Active Substance: METHOTREXATE
     Dosage: 7.5 MG
     Route: 065
     Dates: start: 20120828
  21. TOCILIZUMAB. [Suspect]
     Active Substance: TOCILIZUMAB
     Indication: RHEUMATOID ARTHRITIS
     Dosage: 480 MG, UNK
     Route: 042
  22. TOCILIZUMAB. [Suspect]
     Active Substance: TOCILIZUMAB
     Dosage: 480 MG
     Route: 042
     Dates: start: 20100222
  23. TOCILIZUMAB. [Suspect]
     Active Substance: TOCILIZUMAB
     Dosage: 480 MG
     Route: 042
     Dates: start: 20110825
  24. TOCILIZUMAB. [Suspect]
     Active Substance: TOCILIZUMAB
     Dosage: 480 MG
     Route: 042
     Dates: start: 20160725
  25. METHOTREXATE. [Suspect]
     Active Substance: METHOTREXATE
     Indication: RHEUMATOID ARTHRITIS
     Dosage: UNK
     Route: 065
  26. METHOTREXATE. [Suspect]
     Active Substance: METHOTREXATE
     Dosage: 7.5 MG
     Route: 065
     Dates: start: 20120214
  27. METHOTREXATE. [Suspect]
     Active Substance: METHOTREXATE
     Dosage: 5 MG
     Route: 065
     Dates: start: 20130828
  28. METHOTREXATE. [Suspect]
     Active Substance: METHOTREXATE
     Dosage: 5 MG
     Route: 065
     Dates: start: 20140228
  29. METHOTREXATE. [Suspect]
     Active Substance: METHOTREXATE
     Dosage: 5 MG
     Route: 065
     Dates: start: 20180816
  30. TOCILIZUMAB. [Suspect]
     Active Substance: TOCILIZUMAB
     Dosage: 480 MG
     Route: 042
     Dates: start: 20170906
  31. TOCILIZUMAB. [Suspect]
     Active Substance: TOCILIZUMAB
     Dosage: 480 MG
     Route: 042
     Dates: start: 20180305
  32. METHOTREXATE. [Suspect]
     Active Substance: METHOTREXATE
     Dosage: 10 MG
     Route: 065
     Dates: start: 20100222
  33. METHOTREXATE. [Suspect]
     Active Substance: METHOTREXATE
     Dosage: 10 MG
     Route: 065
     Dates: start: 20130228
  34. METHOTREXATE. [Suspect]
     Active Substance: METHOTREXATE
     Dosage: 5 MG
     Route: 065
     Dates: start: 20140904
  35. TOCILIZUMAB. [Suspect]
     Active Substance: TOCILIZUMAB
     Dosage: 480 MG
     Route: 042
     Dates: start: 20130228
  36. TOCILIZUMAB. [Suspect]
     Active Substance: TOCILIZUMAB
     Dosage: 480 MG
     Route: 042
     Dates: start: 20140904
  37. DICLOFENAC [Concomitant]
     Active Substance: DICLOFENAC
     Indication: PRODUCT USED FOR UNKNOWN INDICATION
     Dosage: UNK
     Route: 065
  38. METHOTREXATE. [Suspect]
     Active Substance: METHOTREXATE
     Dosage: 10 MG
     Route: 065
     Dates: start: 20090820
  39. METHOTREXATE. [Suspect]
     Active Substance: METHOTREXATE
     Dosage: 10 MG
     Route: 065
     Dates: start: 20100820
  40. METHOTREXATE. [Suspect]
     Active Substance: METHOTREXATE
     Dosage: 5 MG
     Route: 065
     Dates: start: 20150329
  41. METHOTREXATE. [Suspect]
     Active Substance: METHOTREXATE
     Dosage: 5 MG
     Route: 065
     Dates: start: 20170906
  42. TOCILIZUMAB. [Suspect]
     Active Substance: TOCILIZUMAB
     Dosage: 480 MG
     Route: 042
     Dates: start: 20120214
  43. TOCILIZUMAB. [Suspect]
     Active Substance: TOCILIZUMAB
     Dosage: 480 MG
     Route: 042
     Dates: start: 20120828
  44. TOCILIZUMAB. [Suspect]
     Active Substance: TOCILIZUMAB
     Dosage: 480 MG
     Route: 042
     Dates: start: 20130829
  45. PREDNISOLONE. [Concomitant]
     Active Substance: PREDNISOLONE
     Indication: PRODUCT USED FOR UNKNOWN INDICATION
     Dosage: UNK
     Route: 065

REACTIONS (3)
  - Short-bowel syndrome [Unknown]
  - Metastases to lung [Not Recovered/Not Resolved]
  - Uterine cancer [Not Recovered/Not Resolved]

NARRATIVE: CASE EVENT DATE: 201808
